FAERS Safety Report 12885230 (Version 2)
Quarter: 2016Q4

REPORT INFORMATION
  Report Type: Spontaneous
  Country: US (occurrence: US)
  Receive Date: 20161026
  Receipt Date: 20161107
  Transmission Date: 20170207
  Serious: Yes (Other)
  Sender: FDA-Public Use
  Company Number: US-PFIZER INC-2016489883

PATIENT
  Age: 74 Year
  Sex: Female
  Weight: 87.75 kg

DRUGS (19)
  1. BENADRYL [Concomitant]
     Active Substance: DIPHENHYDRAMINE HYDROCHLORIDE
     Dosage: 25 MG, 1X/DAY (AT BEDTIME)
  2. TOVIAZ [Suspect]
     Active Substance: FESOTERODINE FUMARATE
     Indication: BLADDER DISORDER
     Dosage: 8 MG, DAILY
     Route: 048
     Dates: start: 2016
  3. VALSARTAN. [Concomitant]
     Active Substance: VALSARTAN
     Indication: BLOOD PRESSURE ABNORMAL
     Dosage: 40 MG, DAILY
  4. DOCUSATE [Concomitant]
     Active Substance: DOCUSATE
     Indication: ABNORMAL FAECES
     Dosage: 300 MG, 2X/DAY (THREE IN THE MORNING AND THREE AT NIGHT)
  5. VOLTAREN [Concomitant]
     Active Substance: DICLOFENAC SODIUM
     Indication: PAIN
     Dosage: 2X/DAY (APPLIED TO FOOT TWICE DAILY)
  6. GABAPENTIN. [Interacting]
     Active Substance: GABAPENTIN
     Dosage: 100 MG CAPSULES IN THE MORNING AND AFTERNOON AND A 300 MG AT BEDTIME
  7. CENTRUM SILVER [Concomitant]
     Active Substance: MINERALS\VITAMINS
     Dosage: UNK, 1X/DAY
  8. OLOPATADINE [Concomitant]
     Active Substance: OLOPATADINE
     Indication: HYPERSENSITIVITY
     Dosage: 2X/DAY (665MG, ONE SPRAY IN EACH NOSTRIL)
     Route: 045
  9. DIOVAN [Concomitant]
     Active Substance: VALSARTAN
     Indication: BLOOD PRESSURE MEASUREMENT
     Dosage: 40 MG, 1X/DAY
  10. GABAPENTIN. [Interacting]
     Active Substance: GABAPENTIN
     Indication: NEURALGIA
     Dosage: TITRATED UP
     Dates: start: 201604
  11. ASPIRIN. [Concomitant]
     Active Substance: ASPIRIN
     Dosage: 81 MG, DAILY
  12. QVAR [Concomitant]
     Active Substance: BECLOMETHASONE DIPROPIONATE
     Indication: ASTHMA
     Dosage: 1 DF, 2X/DAY (ONE INHALATION TWICE DAILY)
     Route: 055
  13. TYLENOL [Concomitant]
     Active Substance: ACETAMINOPHEN
     Indication: PAIN
     Dosage: 3 DF, 1X/DAY (AT BEDTIME)
  14. GABAPENTIN. [Interacting]
     Active Substance: GABAPENTIN
     Dosage: 1000 MG, DAILY (100 MG IN AM, 100 MG IN DINNER, AT SOME TIME TAKING 200, 200, AND 400 MG)
  15. VOLTAREN [Concomitant]
     Active Substance: DICLOFENAC SODIUM
     Indication: ARTHRITIS
  16. PRAVASTATIN. [Concomitant]
     Active Substance: PRAVASTATIN
     Indication: BLOOD CHOLESTEROL
     Dosage: 40 MG, DAILY
  17. TOVIAZ [Interacting]
     Active Substance: FESOTERODINE FUMARATE
     Dosage: 4 MG DAILY MOST DAYS OR 8 MG DAILY ONCE OR TWICE A WEEK AS NEEDED
     Route: 048
  18. PROBIOTIC [Concomitant]
     Active Substance: PROBIOTICS NOS
     Dosage: UNK, 1X/DAY
  19. FLUTICASONE [Concomitant]
     Active Substance: FLUTICASONE\FLUTICASONE PROPIONATE
     Indication: HYPERSENSITIVITY
     Dosage: 2 DF, DAILY (TWO SPRAYS IN EACH NOSTRIL)
     Route: 045

REACTIONS (7)
  - Cystitis [Recovering/Resolving]
  - Drug interaction [Not Recovered/Not Resolved]
  - Urinary tract infection [Recovered/Resolved]
  - Urinary retention [Not Recovered/Not Resolved]
  - Drug ineffective [Not Recovered/Not Resolved]
  - Drug intolerance [Unknown]
  - Balance disorder [Unknown]

NARRATIVE: CASE EVENT DATE: 2016
